FAERS Safety Report 5112775-7 (Version None)
Quarter: 2006Q3

REPORT INFORMATION
  Report Type: 
  Country: None (occurrence: None)
  Receive Date: 20060922
  Receipt Date: 20060718
  Transmission Date: 20061208
  Serious: Yes (Hospitalization)
  Sender: FDA-Public Use
  Company Number: JP-AVENTIS-200612236JP

PATIENT
  Age: 68 Year
  Sex: Female
  Weight: 53 kg

DRUGS (3)
  1. TAXOTERE [Suspect]
     Indication: BREAST CANCER METASTATIC
     Route: 041
     Dates: start: 20060414, end: 20060619
  2. KYTRIL [Concomitant]
     Indication: PREMEDICATION
     Route: 042
     Dates: start: 20060414, end: 20060619
  3. DECADRON [Concomitant]
     Indication: PREMEDICATION
     Route: 042
     Dates: start: 20060414, end: 20060619

REACTIONS (2)
  - INTERSTITIAL LUNG DISEASE [None]
  - PULMONARY ARTERY THROMBOSIS [None]
